FAERS Safety Report 22210546 (Version 2)
Quarter: 2023Q2

REPORT INFORMATION
  Report Type: Spontaneous
  Country: JP (occurrence: JP)
  Receive Date: 20230414
  Receipt Date: 20230602
  Transmission Date: 20230722
  Serious: Yes (Hospitalization, Other)
  Sender: FDA-Public Use
  Company Number: JP-BAXTER-2023BAX018009

PATIENT
  Age: 59 Year
  Sex: Female

DRUGS (13)
  1. DOXORUBICIN [Suspect]
     Active Substance: DOXORUBICIN
     Indication: Diffuse large B-cell lymphoma
     Dosage: DAY 6 OF ADMISSION, 75% DOSE CHP THERAPY
     Route: 065
  2. DOXORUBICIN [Suspect]
     Active Substance: DOXORUBICIN
     Dosage: DAY 28 OF ADMISSION, SECOND COURSE OF 75% DOSE CHP THERAPY WAS PERFORMED
     Route: 065
  3. CYCLOPHOSPHAMIDE [Suspect]
     Active Substance: CYCLOPHOSPHAMIDE
     Indication: Diffuse large B-cell lymphoma
     Dosage: DAY 6 OF ADMISSION, 75% DOSE CHP THERAPY
     Route: 065
  4. CYCLOPHOSPHAMIDE [Suspect]
     Active Substance: CYCLOPHOSPHAMIDE
     Dosage: DAY 28 OF ADMISSION, SECOND COURSE OF 75% DOSE CHP THERAPY WAS PERFORMED
     Route: 065
  5. PREDNISOLONE [Suspect]
     Active Substance: PREDNISOLONE
     Indication: Diffuse large B-cell lymphoma
     Dosage: DAY 2 OF ADMISSION, PRE-ADMINISTRATION STARTED
     Route: 065
  6. PREDNISOLONE [Suspect]
     Active Substance: PREDNISOLONE
     Dosage: DAY 6 OF ADMISSION, 75% DOSE CHP THERAPY
     Route: 065
  7. PREDNISOLONE [Suspect]
     Active Substance: PREDNISOLONE
     Dosage: DAY 28 OF ADMISSION, SECOND COURSE OF 75% DOSE CHP THERAPY WAS PERFORMED
     Route: 065
  8. BROTIZOLAM [Concomitant]
     Active Substance: BROTIZOLAM
     Route: 048
  9. CLONAZEPAM [Concomitant]
     Active Substance: CLONAZEPAM
     Dosage: UNK
     Route: 048
  10. ROTIGOTINE [Concomitant]
     Active Substance: ROTIGOTINE
     Route: 048
  11. ETIZOLAM [Concomitant]
     Active Substance: ETIZOLAM
     Route: 048
  12. LEVODOPA [Concomitant]
     Active Substance: LEVODOPA
     Route: 048
  13. AMANTADINE HYDROCHLORIDE [Concomitant]
     Active Substance: AMANTADINE HYDROCHLORIDE
     Dosage: UNK
     Route: 048
     Dates: start: 2021, end: 2021

REACTIONS (8)
  - Pancreatic injury [Unknown]
  - Pancreatic fistula [Recovering/Resolving]
  - Abdominal pain [Recovering/Resolving]
  - Cold sweat [Recovering/Resolving]
  - Ileus paralytic [Recovering/Resolving]
  - Peritonitis [Recovering/Resolving]
  - Ascites [Recovering/Resolving]
  - Abdominal distension [Recovering/Resolving]
